FAERS Safety Report 8671304 (Version 6)
Quarter: 2012Q4

REPORT INFORMATION
  Report Type: 
  Country: JP (occurrence: JP)
  Receive Date: 20120718
  Receipt Date: 20121023
  Transmission Date: 20130627
  Serious: Yes (Hospitalization, Other)
  Sender: FDA-Public Use
  Company Number: PHHY2012JP059787

PATIENT
  Age: 57 Year
  Sex: Male

DRUGS (4)
  1. VOLTAREN [Suspect]
     Indication: ARTHRALGIA
     Dosage: 75 mg, daily
     Route: 048
     Dates: start: 20110701, end: 20111022
  2. DICLOFENAC [Suspect]
     Dates: start: 200912
  3. LOXOPROFEN SODIUM [Suspect]
     Indication: ARTHRALGIA
     Route: 048
  4. BLESIN [Concomitant]
     Indication: ARTHRALGIA
     Route: 048

REACTIONS (7)
  - Nephrotic syndrome [Recovered/Resolved]
  - Oedema [Unknown]
  - Oliguria [Unknown]
  - Eosinophils urine present [Unknown]
  - Tubulointerstitial nephritis [Recovered/Resolved]
  - Kidney fibrosis [Unknown]
  - Renal atrophy [Unknown]
